FAERS Safety Report 19723517 (Version 2)
Quarter: 2021Q3

REPORT INFORMATION
  Report Type: Report from Study
  Country: US (occurrence: US)
  Receive Date: 20210820
  Receipt Date: 20210824
  Transmission Date: 20211014
  Serious: No
  Sender: FDA-Public Use
  Company Number: US-IPSEN BIOPHARMACEUTICALS, INC.-2021-19946

PATIENT
  Age: 51 Year
  Sex: Male

DRUGS (3)
  1. EFFEXOR [Concomitant]
     Active Substance: VENLAFAXINE HYDROCHLORIDE
     Dosage: DOSE NOT REPORTED
  2. DULOXETINE. [Concomitant]
     Active Substance: DULOXETINE
     Dosage: DOSE NOT REPORTED
  3. SOMATULINE DEPOT [Suspect]
     Active Substance: LANREOTIDE ACETATE
     Indication: GASTROENTEROPANCREATIC NEUROENDOCRINE TUMOUR DISEASE
     Dosage: 120 MG EVERY 4 WEEKS (INJECTION SITE: GLUTEUS)
     Route: 058
     Dates: start: 20210327

REACTIONS (4)
  - Flushing [Recovered/Resolved]
  - Pruritus [Recovered/Resolved]
  - Diarrhoea [Recovered/Resolved]
  - Injection site pain [Unknown]

NARRATIVE: CASE EVENT DATE: 2021
